FAERS Safety Report 8414946-0 (Version None)
Quarter: 2012Q2

REPORT INFORMATION
  Report Type: 
  Country: None (occurrence: None)
  Receive Date: 20120601
  Receipt Date: 20120601
  Transmission Date: 20120825
  Serious: Yes (Disabling)
  Sender: FDA-Public Use
  Company Number: None

PATIENT
  Age: 35 Year
  Sex: Female
  Weight: 90.7194 kg

DRUGS (2)
  1. CYMBALTA [Suspect]
     Indication: FIBROMYALGIA
     Dosage: 60 MG 1 X DAILY PO
     Route: 048
  2. CYMBALTA [Suspect]
     Indication: DEPRESSION
     Dosage: 60 MG 1 X DAILY PO
     Route: 048

REACTIONS (11)
  - COGNITIVE DISORDER [None]
  - DISTURBANCE IN ATTENTION [None]
  - IMPAIRED WORK ABILITY [None]
  - NIGHTMARE [None]
  - DIZZINESS [None]
  - ANXIETY [None]
  - ABNORMAL DREAMS [None]
  - WITHDRAWAL SYNDROME [None]
  - ACTIVITIES OF DAILY LIVING IMPAIRED [None]
  - MOOD SWINGS [None]
  - FATIGUE [None]
